FAERS Safety Report 5023857-2 (Version None)
Quarter: 2006Q2

REPORT INFORMATION
  Report Type: 
  Country: None (occurrence: None)
  Receive Date: 20060606
  Receipt Date: 20060524
  Transmission Date: 20061013
  Serious: Yes (Hospitalization, Other)
  Sender: FDA-Public Use
  Company Number: US200605002016

PATIENT
  Age: 50 Year
  Sex: Female
  Weight: 68.9 kg

DRUGS (1)
  1. EVISTA [Suspect]
     Dosage: 60 MG, DAILY (1/D),
     Dates: start: 20040101

REACTIONS (9)
  - ARTHRALGIA [None]
  - BREAST CANCER METASTATIC [None]
  - FALL [None]
  - FEMUR FRACTURE [None]
  - HUMERUS FRACTURE [None]
  - METASTASES TO BONE [None]
  - MOBILITY DECREASED [None]
  - OESTROGEN RECEPTOR ASSAY POSITIVE [None]
  - SHOULDER PAIN [None]
